FAERS Safety Report 5934004-4 (Version None)
Quarter: 2008Q4

REPORT INFORMATION
  Report Type: 
  Country: None (occurrence: None)
  Receive Date: 20081028
  Receipt Date: 20081028
  Transmission Date: 20090506
  Serious: Yes (Hospitalization)
  Sender: FDA-Public Use
  Company Number: None

PATIENT
  Sex: Male
  Weight: 70 kg

DRUGS (5)
  1. IRINOTECAN HCL [Suspect]
     Indication: GLIOBLASTOMA MULTIFORME
     Dosage: DAY 1, 8, 22, 29 IV
     Route: 042
     Dates: start: 20061226, end: 20070104
  2. TEMODAR [Suspect]
     Indication: GLIOBLASTOMA MULTIFORME
     Dosage: 200MG/M2 DAYS 1-5 PO
     Route: 048
     Dates: start: 20061228, end: 20070101
  3. PRILOSEC [Concomitant]
  4. KEPPRA [Concomitant]
  5. DECADRON [Concomitant]

REACTIONS (1)
  - GLIOBLASTOMA MULTIFORME [None]
